FAERS Safety Report 25915485 (Version 1)
Quarter: 2025Q4

REPORT INFORMATION
  Report Type: Other
  Country: US (occurrence: US)
  Receive Date: 20251013
  Receipt Date: 20251013
  Transmission Date: 20260118
  Serious: Yes (Hospitalization)
  Sender: PRASCO
  Company Number: US-Prasco Laboratories-PRAS20250355

PATIENT
  Age: 57 Year
  Sex: Female

DRUGS (1)
  1. NITROGLYCERIN [Suspect]
     Active Substance: NITROGLYCERIN
     Indication: Analgesic therapy
     Dosage: PATCHES CONTAINING NITROGLYCERIN.
     Route: 062

REACTIONS (8)
  - Chest pain [Recovered/Resolved]
  - Headache [Recovered/Resolved]
  - Chest discomfort [Recovered/Resolved]
  - Blood pressure inadequately controlled [Recovered/Resolved]
  - Hypertension [Recovered/Resolved]
  - Blood cholesterol increased [Recovered/Resolved]
  - Blood triglycerides increased [Recovered/Resolved]
  - Prescription drug used without a prescription [Unknown]
